FAERS Safety Report 4600171-8 (Version None)
Quarter: 2005Q1

REPORT INFORMATION
  Report Type: 
  Country: None (occurrence: None)
  Receive Date: 20050307
  Receipt Date: 20050221
  Transmission Date: 20050727
  Serious: Yes (Other)
  Sender: FDA-Public Use
  Company Number: GB-ROCHE-396299

PATIENT
  Age: 66 Year

DRUGS (10)
  1. TAMIFLU [Suspect]
     Indication: INFLUENZA
     Route: 048
     Dates: start: 20050126, end: 20050204
  2. SPIRIVA [Concomitant]
     Route: 065
  3. LANSOPRAZOLE [Concomitant]
     Route: 065
  4. SIMVASTATIN [Concomitant]
     Dosage: TAKEN NOCTE.
     Route: 065
  5. EFFEXOR [Concomitant]
     Dosage: 37.5 MG X1 AM AND X2 NOCTE.
     Route: 065
  6. SERETIDE [Concomitant]
     Dosage: 250 MCG X2 TWICE DAILY.
     Route: 055
  7. ALBUTEROL [Concomitant]
     Dosage: 100 MCG X2 FOUR TIMES A DAY (QDS).
     Route: 055
  8. ACETAMINOPHEN [Concomitant]
     Dosage: OR TAKEN AS NEEDED (PRN).
     Route: 065
  9. ENSURE PLUS [Concomitant]
  10. CALOGEN [Concomitant]

REACTIONS (5)
  - CHROMATURIA [None]
  - DECREASED APPETITE [None]
  - MALAISE [None]
  - PROTEINURIA [None]
  - URINE ODOUR ABNORMAL [None]
